FAERS Safety Report 19344432 (Version 2)
Quarter: 2025Q4

REPORT INFORMATION
  Report Type: Spontaneous
  Country: US (occurrence: US)
  Receive Date: 20210530
  Receipt Date: 20251003
  Transmission Date: 20260118
  Serious: Yes (Disabling, Other)
  Sender: PURDUE
  Company Number: US-PURDUE-USA-2020-0194769

PATIENT
  Sex: Male

DRUGS (2)
  1. OXYCONTIN [Suspect]
     Active Substance: OXYCODONE HYDROCHLORIDE
     Indication: Product used for unknown indication
     Dosage: UNK
     Route: 048
  2. MS CONTIN [Suspect]
     Active Substance: MORPHINE SULFATE
     Indication: Product used for unknown indication
     Dosage: UNK
     Route: 048

REACTIONS (3)
  - Hepatic cirrhosis [Unknown]
  - Overdose [Unknown]
  - Drug dependence [Unknown]
